FAERS Safety Report 18172830 (Version 2)
Quarter: 2020Q3

REPORT INFORMATION
  Report Type: Spontaneous
  Country: US (occurrence: US)
  Receive Date: 20200819
  Receipt Date: 20200903
  Transmission Date: 20201103
  Serious: No
  Sender: FDA-Public Use
  Company Number: US-NOVOPROD-746559

PATIENT
  Sex: Female

DRUGS (3)
  1. TRESIBA [Suspect]
     Active Substance: INSULIN DEGLUDEC
     Indication: TYPE 2 DIABETES MELLITUS
     Dosage: 18?24 UNITS, SLIDING SCALE, EVERY?OTHER?DAY
     Route: 058
  2. TRESIBA [Suspect]
     Active Substance: INSULIN DEGLUDEC
     Indication: TYPE 2 DIABETES MELLITUS
     Dosage: 18?24 UNITS, SLIDING SCALE, EVERY?OTHER?DAY
     Route: 058
  3. TRESIBA [Suspect]
     Active Substance: INSULIN DEGLUDEC
     Indication: TYPE 2 DIABETES MELLITUS
     Dosage: 18?24 UNITS, SLIDING SCALE, EVERY?OTHER?DAY
     Route: 058

REACTIONS (4)
  - Blood glucose increased [Recovered/Resolved]
  - Off label use [Unknown]
  - Device malfunction [Not Recovered/Not Resolved]
  - Incorrect dose administered by device [Unknown]
